FAERS Safety Report 16656442 (Version 1)
Quarter: 2019Q3

REPORT INFORMATION
  Report Type: Spontaneous
  Country: US (occurrence: US)
  Receive Date: 20190801
  Receipt Date: 20190801
  Transmission Date: 20191004
  Serious: Yes (Hospitalization)
  Sender: FDA-Public Use
  Company Number: US-PFIZER INC-2018352430

PATIENT
  Age: 68 Year
  Sex: Female

DRUGS (1)
  1. IBRANCE [Suspect]
     Active Substance: PALBOCICLIB
     Dosage: 125 MG, CYCLIC (ONCE DAILY X 21 DAYS, 7 OFF)

REACTIONS (7)
  - Diarrhoea [Unknown]
  - Infection [Unknown]
  - Back pain [Unknown]
  - Neoplasm progression [Unknown]
  - Arthritis [Unknown]
  - Vomiting [Unknown]
  - Arthralgia [Unknown]
